FAERS Safety Report 23100929 (Version 1)
Quarter: 2023Q4

REPORT INFORMATION
  Report Type: Spontaneous
  Country: US (occurrence: None)
  Receive Date: 20231021
  Receipt Date: 20231021
  Transmission Date: 20240110
  Serious: Yes (Life-Threatening, Hospitalization)
  Sender: FDA-Public Use
  Company Number: None

PATIENT
  Age: 76 Year
  Sex: Male
  Weight: 77 kg

DRUGS (1)
  1. CETUXIMAB [Suspect]
     Active Substance: CETUXIMAB
     Dosage: FREQUENCY : ONCE;?
     Route: 042
     Dates: start: 20230323, end: 20230323

REACTIONS (2)
  - Anaphylactic reaction [None]
  - Bradycardia [None]

NARRATIVE: CASE EVENT DATE: 20230323
